FAERS Safety Report 16282432 (Version 1)
Quarter: 2019Q2

REPORT INFORMATION
  Report Type: Spontaneous
  Country: MX (occurrence: MX)
  Receive Date: 20190507
  Receipt Date: 20190507
  Transmission Date: 20190711
  Serious: Yes (Other)
  Sender: FDA-Public Use
  Company Number: MX-ASTRAZENECA-2019SE68175

PATIENT
  Age: 16173 Day
  Sex: Male
  Weight: 90 kg

DRUGS (2)
  1. FORXIGA [Suspect]
     Active Substance: DAPAGLIFLOZIN
     Indication: DIABETES MELLITUS
     Route: 048
     Dates: start: 2018
  2. INSULIN [Interacting]
     Active Substance: INSULIN NOS
     Indication: DIABETES MELLITUS
     Dosage: TWO TIMES A DAY
     Route: 058
     Dates: start: 2018

REACTIONS (3)
  - Toe amputation [Recovered/Resolved with Sequelae]
  - Drug interaction [Unknown]
  - Infected bite [Recovered/Resolved]

NARRATIVE: CASE EVENT DATE: 20190401
